FAERS Safety Report 6287748-1 (Version None)
Quarter: 2009Q3

REPORT INFORMATION
  Report Type: 
  Country: None (occurrence: None)
  Receive Date: 20090727
  Receipt Date: 20090727
  Transmission Date: 20100115
  Serious: Yes (Disabling)
  Sender: FDA-Public Use
  Company Number: None

PATIENT
  Sex: Female
  Weight: 81.8 kg

DRUGS (1)
  1. ZICAM COLD REMEDY NASAL GEL ONE MEDICATED SWAB (GEL) MATRIXX INITIATIV [Suspect]
     Indication: NASOPHARYNGITIS
     Dosage: ZICAM COLD REMEDY NASAL GEL 2 X A DAY SWAB INSIDE OF NOSE
     Route: 045
     Dates: start: 20070201, end: 20090201

REACTIONS (2)
  - AGEUSIA [None]
  - ANOSMIA [None]
